FAERS Safety Report 8799457 (Version 1)
Quarter: 2012Q4

REPORT INFORMATION
  Report Type: Spontaneous
  Country: US (occurrence: None)
  Receive Date: 20120918
  Receipt Date: 20120918
  Transmission Date: 20130627
  Serious: Yes (Hospitalization)
  Sender: FDA-Public Use
  Company Number: None

PATIENT
  Age: 77 Year
  Sex: Male
  Weight: 75.7 kg

DRUGS (1)
  1. EXJADE [Suspect]
     Dosage: 2000mg daily po
     Route: 048
     Dates: start: 20111206, end: 20120815

REACTIONS (4)
  - Nausea [None]
  - Vomiting [None]
  - Diarrhoea [None]
  - Cholelithiasis [None]
